FAERS Safety Report 18040015 (Version 1)
Quarter: 2020Q3

REPORT INFORMATION
  Report Type: Spontaneous
  Country: US (occurrence: US)
  Receive Date: 20200717
  Receipt Date: 20200717
  Transmission Date: 20201103
  Serious: Yes (Other)
  Sender: FDA-Public Use
  Company Number: US-PFIZER INC-2020268750

PATIENT
  Age: 53 Year
  Sex: Male
  Weight: 145.15 kg

DRUGS (5)
  1. CORTEF [Suspect]
     Active Substance: HYDROCORTISONE
     Indication: RETINAL DISORDER
  2. LEVOXYL [Suspect]
     Active Substance: LEVOTHYROXINE SODIUM
     Indication: THYROID DISORDER
     Dosage: 150 UG, DAILY (ONCE DAILY IN THE MORNING  )
     Route: 048
     Dates: start: 2004
  3. HYDROCORTISONE. [Suspect]
     Active Substance: HYDROCORTISONE
     Indication: RETINAL DISORDER
  4. HYDROCORTISONE. [Suspect]
     Active Substance: HYDROCORTISONE
     Indication: PITUITARY TUMOUR
     Dosage: 30 MG, DAILY
     Route: 048
     Dates: start: 2004
  5. CORTEF [Suspect]
     Active Substance: HYDROCORTISONE
     Indication: PITUITARY TUMOUR
     Dosage: 30 MG, DAILY (FOUR IN THE MORNING, TWO IN THE EVENING  )
     Route: 048
     Dates: start: 2004

REACTIONS (2)
  - Myocardial infarction [Unknown]
  - Hypoglycaemia [Unknown]

NARRATIVE: CASE EVENT DATE: 2017
